FAERS Safety Report 8135447-3 (Version None)
Quarter: 2012Q1

REPORT INFORMATION
  Report Type: 
  Country: None (occurrence: None)
  Receive Date: 20120214
  Receipt Date: 20120213
  Transmission Date: 20120608
  Serious: Yes (Hospitalization, Other)
  Sender: FDA-Public Use
  Company Number: FR-JNJFOC-20120204806

PATIENT
  Age: 26 Year
  Sex: Female

DRUGS (22)
  1. DOXORUBICIN HCL [Suspect]
     Route: 040
  2. IFOSFAMIDE [Suspect]
     Indication: SPINDLE CELL SARCOMA
     Dosage: CYCLE 3
     Route: 042
  3. IFOSFAMIDE [Suspect]
     Dosage: CYCLE 2
     Route: 042
  4. NEUPOGEN [Concomitant]
     Route: 065
  5. DOXORUBICIN HCL [Suspect]
     Route: 040
  6. DOXORUBICIN HCL [Suspect]
     Route: 040
  7. IFOSFAMIDE [Suspect]
     Dosage: CYCLE 5
     Route: 042
  8. NEUPOGEN [Concomitant]
     Route: 065
  9. METOCLOPRAMIDE [Concomitant]
     Route: 042
  10. DOXORUBICIN HCL [Suspect]
     Dosage: CYCLE 4
     Route: 040
  11. METOCLOPRAMIDE [Concomitant]
     Indication: PROPHYLAXIS OF NAUSEA AND VOMITING
     Route: 042
  12. DOXORUBICIN HCL [Suspect]
     Route: 040
  13. DOXORUBICIN HCL [Suspect]
     Route: 040
  14. IFOSFAMIDE [Suspect]
     Dosage: CYCLE 4
     Route: 042
  15. ONDANSETRON [Concomitant]
     Indication: PROPHYLAXIS OF NAUSEA AND VOMITING
     Route: 065
  16. DOXORUBICIN HCL [Suspect]
     Indication: SPINDLE CELL SARCOMA
     Dosage: CYCLE 5
     Route: 040
  17. DOXORUBICIN HCL [Suspect]
     Dosage: CYCLE 3
     Route: 040
  18. ONDANSETRON [Concomitant]
     Route: 065
  19. DOXORUBICIN HCL [Suspect]
     Dosage: CYCLE 2
     Route: 040
  20. NEUPOGEN [Concomitant]
     Indication: PALLIATIVE CARE
     Route: 065
  21. DOXORUBICIN HCL [Suspect]
     Dosage: CYCLE 1
     Route: 040
  22. IFOSFAMIDE [Suspect]
     Dosage: CYCLE 1
     Route: 042

REACTIONS (4)
  - ALOPECIA [None]
  - MATERNAL EXPOSURE DURING PREGNANCY [None]
  - PREMATURE DELIVERY [None]
  - NAUSEA [None]
